FAERS Safety Report 9767598 (Version 2)
Quarter: 2014Q1

REPORT INFORMATION
  Report Type: Report from Study
  Country: US (occurrence: US)
  Receive Date: 20131217
  Receipt Date: 20140109
  Transmission Date: 20141002
  Serious: Yes (Hospitalization)
  Sender: FDA-Public Use
  Company Number: US-ACTELION-A-US2013-92306

PATIENT
  Age: 44 Year
  Sex: Female

DRUGS (5)
  1. TRACLEER [Suspect]
     Indication: COR PULMONALE CHRONIC
     Dosage: UNK
     Route: 048
  2. SILDENAFIL [Concomitant]
  3. COUMADIN [Concomitant]
  4. REMODULIN [Concomitant]
  5. FLOLAN [Concomitant]

REACTIONS (3)
  - Ankle fracture [Unknown]
  - Dizziness [Unknown]
  - Fall [Unknown]
